FAERS Safety Report 18141795 (Version 3)
Quarter: 2021Q2

REPORT INFORMATION
  Report Type: Report from Study
  Country: US (occurrence: US)
  Receive Date: 20200812
  Receipt Date: 20210611
  Transmission Date: 20210717
  Serious: No
  Sender: FDA-Public Use
  Company Number: NVSC2020US218362

PATIENT
  Sex: Female
  Weight: 107.48 kg

DRUGS (3)
  1. AMLODIPINE [Concomitant]
     Active Substance: AMLODIPINE BESYLATE
     Indication: PRODUCT USED FOR UNKNOWN INDICATION
     Dosage: UNK
     Route: 065
  2. TREPROSTINIL. [Suspect]
     Active Substance: TREPROSTINIL
     Indication: PULMONARY ARTERIAL HYPERTENSION
     Dosage: 60 NANOGRAM PER MILLIGRAM PER MINUTE
     Route: 042
     Dates: start: 20200319
  3. TREPROSTINIL. [Suspect]
     Active Substance: TREPROSTINIL
     Dosage: 60 NANOGRAM PER MILLIGRAM PER MINUTE
     Route: 042
     Dates: start: 20200319

REACTIONS (5)
  - Pain in extremity [Unknown]
  - Cold sweat [Unknown]
  - Product preparation error [Unknown]
  - Product administration interrupted [Unknown]
  - Gait inability [Recovering/Resolving]
